FAERS Safety Report 4383878-X (Version None)
Quarter: 2004Q2

REPORT INFORMATION
  Report Type: 
  Country: None (occurrence: None)
  Receive Date: 20040623
  Receipt Date: 20040623
  Transmission Date: 20050107
  Serious: No
  Sender: FDA-Public Use
  Company Number: None

PATIENT
  Age: 35 Year
  Weight: 90.7194 kg

DRUGS (1)
  1. PREDNISONE [Suspect]

REACTIONS (1)
  - NO ADVERSE EFFECT [None]
